FAERS Safety Report 25157187 (Version 1)
Quarter: 2025Q2

REPORT INFORMATION
  Report Type: Spontaneous
  Country: JP (occurrence: JP)
  Receive Date: 20250403
  Receipt Date: 20250403
  Transmission Date: 20250716
  Serious: Yes (Other)
  Sender: OTSUKA
  Company Number: None

PATIENT
  Age: 3 Decade
  Sex: Female

DRUGS (10)
  1. REXULTI [Suspect]
     Active Substance: BREXPIPRAZOLE
     Indication: Product used for unknown indication
     Route: 048
  2. REXULTI [Suspect]
     Active Substance: BREXPIPRAZOLE
     Route: 048
  3. LATUDA [Suspect]
     Active Substance: LURASIDONE HYDROCHLORIDE
     Indication: Schizophrenia
     Route: 048
  4. LATUDA [Suspect]
     Active Substance: LURASIDONE HYDROCHLORIDE
     Route: 048
  5. LATUDA [Suspect]
     Active Substance: LURASIDONE HYDROCHLORIDE
     Route: 048
  6. LATUDA [Suspect]
     Active Substance: LURASIDONE HYDROCHLORIDE
     Route: 048
  7. LATUDA [Suspect]
     Active Substance: LURASIDONE HYDROCHLORIDE
     Route: 048
  8. BLONANSERIN [Suspect]
     Active Substance: BLONANSERIN
     Indication: Schizophrenia
     Route: 048
  9. BLONANSERIN [Suspect]
     Active Substance: BLONANSERIN
     Route: 048
  10. OLANZAPINE [Concomitant]
     Active Substance: OLANZAPINE
     Indication: Product used for unknown indication
     Route: 065

REACTIONS (2)
  - Oculogyric crisis [Recovering/Resolving]
  - Hyperprolactinaemia [Unknown]
